FAERS Safety Report 18642862 (Version 1)
Quarter: 2020Q4

REPORT INFORMATION
  Report Type: Report from Study
  Country: None (occurrence: US)
  Receive Date: 20201221
  Receipt Date: 20201221
  Transmission Date: 20210114
  Serious: Yes (Congenital Anomaly, Other)
  Sender: FDA-Public Use
  Company Number: US-ABBVIE-17P-163-2179623-00

PATIENT
  Age: 1 Month
  Sex: Male
  Weight: 7.5 kg

DRUGS (1)
  1. SYNAGIS [Suspect]
     Active Substance: PALIVIZUMAB
     Indication: RESPIRATORY SYNCYTIAL VIRUS INFECTION
     Dosage: 112.5 MG, EVERY 28 DAYS
     Route: 030

REACTIONS (3)
  - Cryptorchism [Unknown]
  - Dyspnoea [Unknown]
  - Stenosis [Unknown]

NARRATIVE: CASE EVENT DATE: 20170109
